FAERS Safety Report 15499446 (Version 1)
Quarter: 2018Q4

REPORT INFORMATION
  Report Type: Spontaneous
  Country: CN (occurrence: CN)
  Receive Date: 20181015
  Receipt Date: 20181015
  Transmission Date: 20190205
  Serious: Yes (Other)
  Sender: FDA-Public Use
  Company Number: CN-PFIZER INC-2018406640

PATIENT
  Age: 58 Year
  Sex: Male

DRUGS (2)
  1. SODIUM CHLORIDE. [Concomitant]
     Active Substance: SODIUM CHLORIDE
     Indication: NEPHROTIC SYNDROME
     Dosage: 100 ML, 1X/DAY
     Route: 041
     Dates: start: 20180701, end: 20180712
  2. METHYLPREDNISOLONE SODIUM SUCCINATE. [Suspect]
     Active Substance: METHYLPREDNISOLONE SODIUM SUCCINATE
     Indication: NEPHROTIC SYNDROME
     Dosage: 50 MG, 1X/DAY
     Route: 041
     Dates: start: 20180701, end: 20180712

REACTIONS (1)
  - Hypocalcaemia [Recovering/Resolving]

NARRATIVE: CASE EVENT DATE: 20180712
